FAERS Safety Report 15563387 (Version 1)
Quarter: 2018Q4

REPORT INFORMATION
  Report Type: Spontaneous
  Country: None (occurrence: US)
  Receive Date: 20181029
  Receipt Date: 20181029
  Transmission Date: 20190205
  Serious: No
  Sender: FDA-Public Use
  Company Number: US-MEDAC PHARMA, INC.-2058194

PATIENT
  Age: 57 Year
  Sex: Female

DRUGS (6)
  1. RASUVO [Suspect]
     Active Substance: METHOTREXATE SODIUM
     Indication: RHEUMATOID ARTHRITIS
     Route: 051
  2. HUMIRA [Concomitant]
     Active Substance: ADALIMUMAB
     Route: 058
     Dates: start: 201801, end: 2018
  3. XELJANZ XR [Concomitant]
     Active Substance: TOFACITINIB CITRATE
  4. ENBREL [Suspect]
     Active Substance: ETANERCEPT
     Dates: start: 20171112, end: 201802
  5. OTREXUP [Concomitant]
     Active Substance: METHOTREXATE
     Route: 058
     Dates: start: 201803, end: 201806
  6. DOXYCYCLINE HYCLATE. [Concomitant]
     Active Substance: DOXYCYCLINE HYCLATE

REACTIONS (3)
  - Abdominal pain [Unknown]
  - Drug ineffective [Unknown]
  - Rheumatoid arthritis [Not Recovered/Not Resolved]

NARRATIVE: CASE EVENT DATE: 201806
